FAERS Safety Report 9888266 (Version 1)
Quarter: 2014Q1

REPORT INFORMATION
  Report Type: Spontaneous
  Country: IT (occurrence: IT)
  Receive Date: 20140211
  Receipt Date: 20140211
  Transmission Date: 20141002
  Serious: Yes (Other)
  Sender: FDA-Public Use
  Company Number: IT-TEVA-460881ISR

PATIENT
  Age: 62 Year
  Sex: Female
  Weight: 47 kg

DRUGS (1)
  1. TICLOPIDINE [Suspect]
     Indication: AORTIC DISORDER
     Dosage: 2 DOSAGE FORMS DAILY; 2 DF DAILY
     Route: 048
     Dates: start: 20131018, end: 20131217

REACTIONS (2)
  - Hepatocellular injury [Recovered/Resolved]
  - Liver disorder [Recovered/Resolved]
